FAERS Safety Report 8611322 (Version 2)
Quarter: 2012Q4

REPORT INFORMATION
  Report Type: 
  Country: GB (occurrence: GB)
  Receive Date: 20120612
  Receipt Date: 20120928
  Transmission Date: 20130627
  Serious: Yes (Hospitalization, Other)
  Sender: FDA-Public Use
  Company Number: PHHY2012GB049257

PATIENT
  Age: 80 Year
  Sex: Male
  Weight: 70 kg

DRUGS (6)
  1. SIMVASTATIN [Suspect]
     Indication: BLOOD CHOLESTEROL INCREASED
     Dosage: 40 mg, QD
     Route: 048
     Dates: start: 20120220, end: 20120513
  2. FUSIDIC ACID [Interacting]
     Indication: LOCALISED INFECTION
     Dosage: 250 mg, BID
     Route: 048
     Dates: start: 20120413, end: 20120513
  3. CILOSTAZOL [Concomitant]
     Indication: POOR PERIPHERAL CIRCULATION
     Dosage: 50 mg, BID
     Dates: start: 20120510
  4. FLUCLOXACILLIN [Concomitant]
     Indication: LOCALISED INFECTION
     Dosage: 500 mg, QID
     Dates: start: 20120413, end: 20120513
  5. NICORANDIL [Concomitant]
     Indication: ANGINA PECTORIS
     Dosage: 10 mg, BID
     Route: 048
     Dates: start: 20120401
  6. OMEPRAZOLE [Concomitant]
     Indication: GASTROOESOPHAGEAL REFLUX DISEASE
     Dosage: 20 mg, UNK
     Route: 048
     Dates: start: 20120220

REACTIONS (4)
  - Rhabdomyolysis [Recovered/Resolved]
  - Pain in extremity [Recovered/Resolved]
  - Asthenia [Recovered/Resolved]
  - Drug interaction [Recovered/Resolved]
